FAERS Safety Report 6200065-0 (Version None)
Quarter: 2009Q2

REPORT INFORMATION
  Report Type: 
  Country: None (occurrence: None)
  Receive Date: 20090518
  Receipt Date: 20090205
  Transmission Date: 20091009
  Serious: No
  Sender: FDA-Public Use
  Company Number: WAES 0810USA02137

PATIENT
  Age: 78 Year
  Sex: Male
  Weight: 77.5651 kg

DRUGS (14)
  1. JANUVIA [Suspect]
     Indication: DIABETES MELLITUS
     Dosage: 100 MG/DAILY/PO
     Route: 048
     Dates: start: 20080901
  2. BENADRYL [Concomitant]
  3. LANTUS [Concomitant]
  4. NEXIUM [Concomitant]
  5. PLETAL [Concomitant]
  6. PROCARDIA [Concomitant]
  7. ZETIA [Concomitant]
  8. ASPIRIN [Concomitant]
  9. FUROSEMIDE [Concomitant]
  10. ISOSORBIDE [Concomitant]
  11. METFORMIN HYDROCHLORIDE [Concomitant]
  12. METOPROLOL SUCCINATE [Concomitant]
  13. SIMVASTATIN [Concomitant]
  14. WARFARIN SODIUM [Concomitant]

REACTIONS (1)
  - PERIPHERAL ISCHAEMIA [None]
